FAERS Safety Report 12906718 (Version 4)
Quarter: 2016Q4

REPORT INFORMATION
  Report Type: Spontaneous
  Country: US (occurrence: US)
  Receive Date: 20161103
  Receipt Date: 20161222
  Transmission Date: 20170207
  Serious: Yes (Other)
  Sender: FDA-Public Use
  Company Number: US-PFIZER INC-2016473970

PATIENT
  Age: 68 Year
  Sex: Female
  Weight: 75.75 kg

DRUGS (21)
  1. DULOXETINE. [Concomitant]
     Active Substance: DULOXETINE
     Indication: NERVE COMPRESSION
  2. AMBIEN [Concomitant]
     Active Substance: ZOLPIDEM TARTRATE
     Indication: SLEEP DISORDER
     Dosage: 2 MG, UNK
     Dates: start: 201606
  3. TIZANIDINE. [Concomitant]
     Active Substance: TIZANIDINE
     Indication: MUSCLE RELAXANT THERAPY
     Dosage: UNK UNK, TWO TO THREE TIMES A DAY
  4. LYRICA [Suspect]
     Active Substance: PREGABALIN
     Indication: COLON ADENOMA
     Dosage: 75 MG, 2X/DAY
     Route: 048
     Dates: start: 20161005
  5. MELOXICAM. [Concomitant]
     Active Substance: MELOXICAM
     Indication: BACK PAIN
     Dosage: 15 MG, 1X/DAY
     Dates: start: 201601
  6. DULOXETINE. [Concomitant]
     Active Substance: DULOXETINE
     Indication: ARTHRITIS
     Dosage: 60 MG, 1X/DAY
     Dates: start: 201601
  7. HYDROCODONE BITARTRATE AND ACETAMINOPHEN [Concomitant]
     Active Substance: ACETAMINOPHEN\HYDROCODONE BITARTRATE
     Indication: NERVE COMPRESSION
  8. LYRICA [Suspect]
     Active Substance: PREGABALIN
     Indication: ESSENTIAL HYPERTENSION
     Dosage: 75 MG, 3X/DAY
     Route: 048
     Dates: start: 2016, end: 201608
  9. HYDROCODONE BITARTRATE AND ACETAMINOPHEN [Concomitant]
     Active Substance: ACETAMINOPHEN\HYDROCODONE BITARTRATE
     Indication: BACK PAIN
     Dosage: [HYDROCODONE BITARTRATE 5MG/PARACETAMOL 325 MG], 2X/DAY
     Dates: start: 201301
  10. HYDROCODONE BITARTRATE AND ACETAMINOPHEN [Concomitant]
     Active Substance: ACETAMINOPHEN\HYDROCODONE BITARTRATE
     Indication: ARTHRITIS
     Dosage: UNK, 3X/DAY
  11. MELOXICAM. [Concomitant]
     Active Substance: MELOXICAM
     Indication: NERVE COMPRESSION
  12. DULOXETINE. [Concomitant]
     Active Substance: DULOXETINE
     Indication: SCOLIOSIS
  13. LYRICA [Suspect]
     Active Substance: PREGABALIN
     Indication: CHRONIC HEPATITIS C
     Dosage: ONE 75MG
     Route: 048
     Dates: start: 2016
  14. LYRICA [Suspect]
     Active Substance: PREGABALIN
     Indication: VITAMIN D DEFICIENCY
     Dosage: TWO 75MG
     Route: 048
  15. LYRICA [Suspect]
     Active Substance: PREGABALIN
     Indication: SCOLIOSIS
     Dosage: 150 MG, 1X/DAY [150MG ONCE A DAY]
     Route: 048
     Dates: start: 201611
  16. LYRICA [Suspect]
     Active Substance: PREGABALIN
     Indication: NERVE COMPRESSION
     Dosage: 75 MG, DAILY [75MG LATER ON IN THE DAY]
     Route: 048
     Dates: start: 201611
  17. LYRICA [Suspect]
     Active Substance: PREGABALIN
     Indication: ARTHRITIS
     Dosage: UNK
  18. MELOXICAM. [Concomitant]
     Active Substance: MELOXICAM
     Indication: ARTHRITIS
  19. MELOXICAM. [Concomitant]
     Active Substance: MELOXICAM
     Indication: SCOLIOSIS
  20. HYDROCODONE BITARTRATE AND ACETAMINOPHEN [Concomitant]
     Active Substance: ACETAMINOPHEN\HYDROCODONE BITARTRATE
     Indication: SCOLIOSIS
  21. GABAPENTIN. [Concomitant]
     Active Substance: GABAPENTIN
     Indication: BACK DISORDER
     Dosage: 300 MG, UNK
     Dates: start: 201510, end: 2016

REACTIONS (13)
  - Cerebral disorder [Unknown]
  - Burning sensation [Unknown]
  - Gait disturbance [Unknown]
  - Disturbance in attention [Unknown]
  - Nerve injury [Recovered/Resolved]
  - Pain in extremity [Recovered/Resolved]
  - Cognitive disorder [Unknown]
  - Drug ineffective [Unknown]
  - Weight increased [Not Recovered/Not Resolved]
  - Pain [Unknown]
  - Mobility decreased [Unknown]
  - Musculoskeletal discomfort [Unknown]
  - Intentional product misuse [Unknown]

NARRATIVE: CASE EVENT DATE: 2016
